FAERS Safety Report 5029814-4 (Version None)
Quarter: 2006Q2

REPORT INFORMATION
  Report Type: 
  Country: None (occurrence: None)
  Receive Date: 20060614
  Receipt Date: 20060601
  Transmission Date: 20061013
  Serious: Yes (Other)
  Sender: FDA-Public Use
  Company Number: USA-2006-0024375

PATIENT
  Age: 13 Month

DRUGS (1)
  1. OXYCODONE HCL [Suspect]
     Indication: INTENTIONAL DRUG MISUSE
     Dates: start: 20051231

REACTIONS (4)
  - OFF LABEL USE [None]
  - OVERDOSE [None]
  - RESPIRATORY ARREST [None]
  - VICTIM OF CHILD ABUSE [None]
